FAERS Safety Report 8394456-X (Version None)
Quarter: 2012Q2

REPORT INFORMATION
  Report Type: 
  Country: None (occurrence: None)
  Receive Date: 20120530
  Receipt Date: 20120521
  Transmission Date: 20120825
  Serious: Yes (Hospitalization, Disabling, Other)
  Sender: FDA-Public Use
  Company Number: PHHY2012FR029478

PATIENT
  Sex: Male
  Weight: 89 kg

DRUGS (8)
  1. METFORMIN HCL [Concomitant]
     Indication: DIABETES MELLITUS
     Route: 048
  2. ASPIRIN [Concomitant]
     Indication: MYOCARDIAL INFARCTION
  3. INDAPAMIDE [Concomitant]
     Indication: MYOCARDIAL INFARCTION
     Route: 048
  4. GLEEVEC [Suspect]
     Dosage: 600 MG, DAILY
     Dates: start: 20060301
  5. CRESTOR [Concomitant]
     Indication: DYSLIPIDAEMIA
     Route: 048
  6. GLEEVEC [Suspect]
     Indication: CHRONIC MYELOID LEUKAEMIA
     Dosage: 400 MG, DAILY
     Dates: start: 20021001
  7. BISOPROLOL FUMARATE [Concomitant]
     Indication: MYOCARDIAL INFARCTION
     Route: 048
  8. REPAGLINIDE [Concomitant]
     Indication: DIABETES MELLITUS

REACTIONS (5)
  - COLON CANCER [None]
  - NEOPLASM MALIGNANT [None]
  - METASTASES TO LIVER [None]
  - VASCULAR OCCLUSION [None]
  - METASTASES TO LYMPH NODES [None]
